FAERS Safety Report 7171420-X (Version None)
Quarter: 2010Q4

REPORT INFORMATION
  Report Type: 
  Country: None (occurrence: None)
  Receive Date: 20101123
  Receipt Date: 20100927
  Transmission Date: 20110411
  Serious: No
  Sender: FDA-Public Use
  Company Number: 019467

PATIENT
  Sex: Female
  Weight: 106.6 kg

DRUGS (17)
  1. CIMZIA [Suspect]
     Indication: CROHN'S DISEASE
     Dosage: (400 MG 1X/MONTH SUBCUTANEOUS)
     Route: 058
     Dates: start: 20090101
  2. OXYBUTYNIN [Suspect]
     Indication: URINARY INCONTINENCE
     Dosage: (5 MG, 1 TABLET ORAL)
     Route: 048
     Dates: start: 20100801
  3. ACTOS [Concomitant]
  4. BYETTA [Concomitant]
  5. TRAZODONE [Concomitant]
  6. REQUIP [Concomitant]
  7. SIMVASTATIN [Concomitant]
  8. LASIX [Concomitant]
  9. POTASSIUM [Concomitant]
  10. FLUTICASONE PROPIONATE [Concomitant]
  11. SYMBICORT [Concomitant]
  12. COMBIVENT [Concomitant]
  13. XANAX [Concomitant]
  14. ACTONEL [Concomitant]
  15. MULTI-VITAMINS [Concomitant]
  16. VITAMIN D [Concomitant]
  17. ALBUTEROL SULFATE [Concomitant]

REACTIONS (1)
  - MALAISE [None]
